FAERS Safety Report 9470443 (Version 1)
Quarter: 2013Q3

REPORT INFORMATION
  Report Type: Spontaneous
  Country: US (occurrence: None)
  Receive Date: 20130820
  Receipt Date: 20130820
  Transmission Date: 20140515
  Serious: No
  Sender: FDA-Public Use
  Company Number: None

PATIENT
  Age: 60 Year
  Sex: Female
  Weight: 90.27 kg

DRUGS (1)
  1. CIPROFLOXACIN [Suspect]
     Indication: EAR INFECTION
     Dosage: 1 PILL?TWICE DAILY?TAKEN BY MOUTH?5 DAYS
     Route: 048

REACTIONS (5)
  - Abasia [None]
  - Pain [None]
  - Chest pain [None]
  - Arthralgia [None]
  - Pain in extremity [None]
